FAERS Safety Report 14220903 (Version 1)
Quarter: 2017Q4

REPORT INFORMATION
  Report Type: Spontaneous
  Country: PL (occurrence: PL)
  Receive Date: 20171124
  Receipt Date: 20171124
  Transmission Date: 20180321
  Serious: Yes (Hospitalization)
  Sender: FDA-Public Use
  Company Number: PL-JNJFOC-20171032654

PATIENT
  Age: 81 Year
  Sex: Female
  Weight: 50 kg

DRUGS (2)
  1. METHOTREXATE. [Concomitant]
     Active Substance: METHOTREXATE
     Dosage: DRUG ADMINISTRATION WAS CONTINUED ( AS OF 02-JUL-2014 )
     Route: 065
     Dates: start: 2009
  2. REMICADE [Suspect]
     Active Substance: INFLIXIMAB
     Indication: RHEUMATOID ARTHRITIS
     Route: 042
     Dates: start: 20090811, end: 20140522

REACTIONS (6)
  - Weight decreased [Recovering/Resolving]
  - Depression [Recovering/Resolving]
  - Red blood cell count decreased [Recovering/Resolving]
  - Decreased appetite [Recovering/Resolving]
  - Haematocrit decreased [Recovering/Resolving]
  - Anaemia [Recovering/Resolving]

NARRATIVE: CASE EVENT DATE: 20140702
